FAERS Safety Report 9196880 (Version 1)
Quarter: 2013Q1

REPORT INFORMATION
  Report Type: Spontaneous
  Country: US (occurrence: None)
  Receive Date: 20120703
  Receipt Date: 20120703
  Transmission Date: 20140127
  Serious: No
  Sender: FDA-Public Use
  Company Number: PHEH2012US007388

PATIENT
  Age: 24 Year
  Sex: Female

DRUGS (6)
  1. GILENYA [Suspect]
     Route: 048
  2. NUVIGIL (ARMODAFINIL) [Concomitant]
  3. LYRICA (PREGABALIN) [Concomitant]
  4. BACLOFEN (BACLOFEN) (BACLOFEN) [Concomitant]
  5. CYMBALTA (DULOXETINE HYDROCHLORIDE) [Concomitant]
  6. OXYBUTYNIN (OXYBUTYNIN) [Concomitant]

REACTIONS (1)
  - Vaginal discharge [None]
